FAERS Safety Report 4528362-5 (Version None)
Quarter: 2004Q4

REPORT INFORMATION
  Report Type: 
  Country: None (occurrence: None)
  Receive Date: 20041126
  Receipt Date: 20040805
  Transmission Date: 20050328
  Serious: No
  Sender: FDA-Public Use
  Company Number: 2004US002217

PATIENT
  Age: 42 Year
  Sex: Female
  Weight: 51.7 kg

DRUGS (12)
  1. ALOXI [Suspect]
     Indication: PROPHYLAXIS OF NAUSEA AND VOMITING
     Dosage: 0.25 MG, SINGLE, IV BOLUS
     Route: 040
     Dates: start: 20040805, end: 20040805
  2. DECADRON [Concomitant]
  3. BENADRYL ^WARNER-LAMBERT^ (DIPHENYDRAMINE HYDROCHLORIDE) [Concomitant]
  4. SODIUM CHLORIDE [Concomitant]
  5. RITUXIMAB (RITUXIMAB) [Concomitant]
  6. CYCLOPHOSPHAMIDE [Concomitant]
  7. DOXORUBICIN HCL [Concomitant]
  8. VINCRISTINE [Concomitant]
  9. PREDNISONE [Concomitant]
  10. WARFARIN (WARFARIN) [Concomitant]
  11. AUGMENTIN (CLAVULANATE POTASSIUM, AMOXICILLIN) [Concomitant]
  12. PRILOSEC [Concomitant]

REACTIONS (1)
  - TREMOR [None]
